FAERS Safety Report 7074131-4 (Version None)
Quarter: 2010Q4

REPORT INFORMATION
  Report Type: 
  Country: None (occurrence: None)
  Receive Date: 20101029
  Receipt Date: 20101022
  Transmission Date: 20110411
  Serious: Yes (Hospitalization)
  Sender: FDA-Public Use
  Company Number: JP-PFIZER INC-2010130871

PATIENT
  Age: 78 Year
  Sex: Female
  Weight: 63 kg

DRUGS (23)
  1. EXEMESTANE [Suspect]
     Indication: BREAST CANCER
     Dosage: 25 MG, 1X/DAY
     Route: 048
     Dates: start: 20050704, end: 20081207
  2. ANASTROZOLE [Suspect]
     Indication: BREAST CANCER
     Dosage: UNK
     Dates: start: 20081209, end: 20101013
  3. NORVASC [Concomitant]
     Indication: HYPERTENSION
     Route: 048
     Dates: start: 20050819
  4. SELBEX [Concomitant]
     Route: 048
     Dates: start: 20051026
  5. DIOVAN [Concomitant]
     Indication: HYPERTENSION
     Route: 048
     Dates: start: 20051216
  6. TENAXIL [Concomitant]
     Indication: HYPERTENSION
     Route: 048
     Dates: start: 20051012
  7. MAINTATE [Concomitant]
     Indication: HYPERTENSION
     Route: 048
     Dates: start: 20051116
  8. NIFLAN [Concomitant]
     Indication: POSTOPERATIVE ANALGESIA
     Route: 031
  9. RHYTHMY [Concomitant]
     Route: 048
     Dates: start: 20050713
  10. LANDEL [Concomitant]
     Indication: HYPERTENSION
     Route: 048
     Dates: start: 20060302
  11. CEROCRAL [Concomitant]
     Route: 048
  12. POSTERISAN [Concomitant]
     Indication: HAEMORRHOIDS
     Route: 062
  13. HEMOCURON [Concomitant]
     Indication: HAEMORRHOIDS
     Route: 048
  14. MAGNESIUM OXIDE [Concomitant]
     Route: 048
  15. RHUBARB [Concomitant]
     Route: 048
  16. METFORMIN HYDROCHLORIDE [Concomitant]
     Indication: DIABETES MELLITUS
     Route: 048
  17. ALPRAZOLAM [Concomitant]
     Route: 048
  18. SILECE [Concomitant]
     Route: 048
  19. LOXONIN [Concomitant]
     Indication: ANALGESIC THERAPY
     Dosage: UNK
     Route: 048
     Dates: start: 20051109, end: 20101013
  20. KETOPROFEN [Concomitant]
     Indication: ANALGESIC THERAPY
     Route: 062
  21. AREDIA [Concomitant]
     Indication: OSTEONECROSIS
     Route: 042
  22. YODEL [Concomitant]
     Indication: CONSTIPATION
     Dosage: UNK
     Route: 048
     Dates: start: 20070427
  23. ATELEC [Concomitant]
     Indication: HYPERTENSION
     Dosage: UNK
     Route: 048
     Dates: start: 20090428

REACTIONS (1)
  - NEPHROGENIC ANAEMIA [None]
